FAERS Safety Report 16216333 (Version 1)
Quarter: 2019Q2

REPORT INFORMATION
  Report Type: Spontaneous
  Country: US (occurrence: US)
  Receive Date: 20190315
  Receipt Date: 20190315
  Transmission Date: 20190711
  Serious: No
  Sender: FDA-Public Use
  Company Number: None

PATIENT
  Age: 68 Year
  Sex: Male

DRUGS (2)
  1. FORSKOLIN [Suspect]
     Active Substance: COLFORSIN
  2. TERBINAFINE. [Suspect]
     Active Substance: TERBINAFINE
     Dates: start: 20180305

REACTIONS (3)
  - Dyspnoea [None]
  - Tinnitus [None]
  - Palpitations [None]

NARRATIVE: CASE EVENT DATE: 20190315
